FAERS Safety Report 8875532 (Version 3)
Quarter: 2012Q4

REPORT INFORMATION
  Report Type: 
  Country: FR (occurrence: FR)
  Receive Date: 20121030
  Receipt Date: 20121109
  Transmission Date: 20130627
  Serious: Yes (Death, Hospitalization)
  Sender: FDA-Public Use
  Company Number: FR-JNJFOC-20121015582

PATIENT
  Sex: Female

DRUGS (1)
  1. XARELTO [Suspect]
     Indication: ATRIAL FIBRILLATION
     Route: 065

REACTIONS (4)
  - Hemiplegia [Fatal]
  - Cerebral haemorrhage [Fatal]
  - Coma [Fatal]
  - Haematoma [Fatal]
